FAERS Safety Report 7553474-1 (Version None)
Quarter: 2011Q2

REPORT INFORMATION
  Report Type: 
  Country: None (occurrence: None)
  Receive Date: 20110617
  Receipt Date: 20110507
  Transmission Date: 20111010
  Serious: No
  Sender: FDA-Public Use
  Company Number: US-MYLANLABS-2011S1009581

PATIENT
  Sex: Male

DRUGS (2)
  1. LATANOPROST [Suspect]
     Indication: GLAUCOMA
     Route: 047
     Dates: start: 20110401
  2. ALLERGY EYES [Concomitant]

REACTIONS (2)
  - PHOTOPHOBIA [None]
  - OCULAR HYPERAEMIA [None]
